FAERS Safety Report 16711516 (Version 3)
Quarter: 2019Q3

REPORT INFORMATION
  Report Type: Spontaneous
  Country: US (occurrence: US)
  Receive Date: 20190816
  Receipt Date: 20190912
  Transmission Date: 20191004
  Serious: Yes (Hospitalization, Other)
  Sender: FDA-Public Use
  Company Number: US-SA-2019SA221227

PATIENT
  Age: 65 Year
  Sex: Male

DRUGS (1)
  1. LANTUS SOLOSTAR [Suspect]
     Active Substance: INSULIN GLARGINE
     Indication: TYPE 2 DIABETES MELLITUS
     Dosage: 22 U, QD
     Route: 065

REACTIONS (8)
  - Feeling abnormal [Unknown]
  - Blood glucose abnormal [Unknown]
  - Dehydration [Unknown]
  - Blood glucose increased [Unknown]
  - Visual impairment [Unknown]
  - Weight decreased [Unknown]
  - Diabetes mellitus inadequate control [Unknown]
  - Device operational issue [Unknown]
